FAERS Safety Report 7805129-3 (Version None)
Quarter: 2011Q4

REPORT INFORMATION
  Report Type: 
  Country: None (occurrence: None)
  Receive Date: 20111010
  Receipt Date: 20111005
  Transmission Date: 20120403
  Serious: Yes (Death)
  Sender: FDA-Public Use
  Company Number: PHHY2011BE87780

PATIENT
  Age: 90 Year
  Sex: Female

DRUGS (1)
  1. METHYLPHENIDATE [Suspect]
     Dosage: 10 MG, BID

REACTIONS (8)
  - DEATH [None]
  - ATTENTION DEFICIT/HYPERACTIVITY DISORDER [None]
  - DEMENTIA WITH LEWY BODIES [None]
  - HALLUCINATION, VISUAL [None]
  - HYPOTHERMIA [None]
  - GENERAL PHYSICAL HEALTH DETERIORATION [None]
  - DELIRIUM [None]
  - COMA [None]
